FAERS Safety Report 17223202 (Version 1)
Quarter: 2020Q1

REPORT INFORMATION
  Report Type: Spontaneous
  Country: CA (occurrence: CA)
  Receive Date: 20200102
  Receipt Date: 20200102
  Transmission Date: 20200409
  Serious: Yes (Other)
  Sender: FDA-Public Use
  Company Number: CA-CELLTRION INC.-2019CA027765

PATIENT

DRUGS (3)
  1. INFLIXIMAB PFIZER (UNKNOWN) [Suspect]
     Active Substance: INFLIXIMAB
     Indication: CROHN^S DISEASE
     Dosage: 400 MG, EVERY 5 WEEKS
     Route: 042
  2. 5-AMINOSALICYLIC ACID [Concomitant]
     Active Substance: MESALAMINE
     Dosage: GASTRO-RESISTANT COATED TABLET
  3. TOPICORT [Concomitant]
     Active Substance: DESOXIMETASONE

REACTIONS (3)
  - Off label use [Unknown]
  - Alopecia [Recovered/Resolved]
  - Psoriasis [Recovered/Resolved]
